FAERS Safety Report 22089538 (Version 1)
Quarter: 2023Q1

REPORT INFORMATION
  Report Type: Spontaneous
  Country: US (occurrence: None)
  Receive Date: 20230311
  Receipt Date: 20230311
  Transmission Date: 20230418
  Serious: Yes (Other)
  Sender: FDA-Public Use
  Company Number: None

PATIENT
  Age: 66 Year
  Sex: Female
  Weight: 90 kg

DRUGS (1)
  1. TACROLIMUS [Suspect]
     Active Substance: TACROLIMUS
     Indication: Lichen sclerosus
     Dosage: OTHER QUANTITY : 1 SMALL SIZE PEA;?FREQUENCY : AT BEDTIME;?
     Route: 061

REACTIONS (10)
  - Dermatitis [None]
  - Arthritis [None]
  - Fatigue [None]
  - Pruritus [None]
  - Urticaria [None]
  - Swelling [None]
  - Epstein-Barr virus infection [None]
  - Oral mucosal blistering [None]
  - Oral discomfort [None]
  - Parosmia [None]

NARRATIVE: CASE EVENT DATE: 20230215
